FAERS Safety Report 14836078 (Version 12)
Quarter: 2019Q2

REPORT INFORMATION
  Report Type: Spontaneous
  Country: US (occurrence: US)
  Receive Date: 20180502
  Receipt Date: 20190506
  Transmission Date: 20190711
  Serious: Yes (Hospitalization)
  Sender: FDA-Public Use
  Company Number: US-PFIZER INC-2018150885

PATIENT
  Age: 75 Year
  Sex: Female
  Weight: 61 kg

DRUGS (12)
  1. PROLIA [Concomitant]
     Active Substance: DENOSUMAB
     Dosage: UNK
  2. LEVAQUIN [Concomitant]
     Active Substance: LEVOFLOXACIN
     Dosage: UNK
  3. SUTENT [Suspect]
     Active Substance: SUNITINIB MALATE
     Indication: GASTROINTESTINAL STROMAL TUMOUR
     Dosage: 50 MG, CYCLIC, (2 WEEKS ON/1 WEEK OFF)
     Route: 048
     Dates: start: 20180417, end: 20180521
  4. VITAMIN D2 [Concomitant]
     Active Substance: ERGOCALCIFEROL
     Dosage: UNK
  5. VITAMIN C [Concomitant]
     Active Substance: ASCORBIC ACID
     Dosage: UNK
  6. CARAFATE [Concomitant]
     Active Substance: SUCRALFATE
     Dosage: UNK
  7. CIPRO [Concomitant]
     Active Substance: CIPROFLOXACIN HYDROCHLORIDE
     Dosage: UNK
  8. PRILOSEC [Concomitant]
     Active Substance: OMEPRAZOLE MAGNESIUM
     Dosage: UNK
  9. BACLOFEN. [Concomitant]
     Active Substance: BACLOFEN
     Dosage: UNK
  10. PERCOCET [Concomitant]
     Active Substance: ACETAMINOPHEN\OXYCODONE HYDROCHLORIDE
     Dosage: UNK
  11. SUTENT [Suspect]
     Active Substance: SUNITINIB MALATE
     Dosage: 50 MG, CYCLIC, (10 DAYS ON AND 11 DAYS OFF)
     Route: 048
     Dates: start: 20180601, end: 20180826
  12. OMEPRAZOLE. [Concomitant]
     Active Substance: OMEPRAZOLE
     Dosage: UNK

REACTIONS (34)
  - Glossodynia [Recovering/Resolving]
  - Weight fluctuation [Unknown]
  - Stomatitis [Recovered/Resolved]
  - Skin exfoliation [Recovered/Resolved]
  - Blister [Not Recovered/Not Resolved]
  - Erythema [Recovered/Resolved]
  - Neoplasm progression [Unknown]
  - Anxiety [Not Recovered/Not Resolved]
  - Back pain [Not Recovered/Not Resolved]
  - Pain in jaw [Recovered/Resolved]
  - Dehydration [Unknown]
  - Sciatica [Unknown]
  - Oral pain [Recovered/Resolved]
  - Tongue injury [Recovered/Resolved]
  - Peripheral swelling [Recovered/Resolved]
  - Hypoaesthesia [Unknown]
  - Fistula [Recovering/Resolving]
  - Blood calcium decreased [Not Recovered/Not Resolved]
  - Contusion [Unknown]
  - Procedural pain [Unknown]
  - Pain [Unknown]
  - Taste disorder [Recovered/Resolved]
  - Arthralgia [Recovered/Resolved]
  - Joint swelling [Not Recovered/Not Resolved]
  - Urinary tract infection [Recovered/Resolved]
  - Skin fissures [Recovering/Resolving]
  - Tongue discomfort [Unknown]
  - Urine odour abnormal [Unknown]
  - Pain in extremity [Recovered/Resolved]
  - Periorbital swelling [Recovered/Resolved]
  - Back disorder [Not Recovered/Not Resolved]
  - Oral discomfort [Unknown]
  - Weight decreased [Not Recovered/Not Resolved]
  - Decreased appetite [Recovering/Resolving]

NARRATIVE: CASE EVENT DATE: 2018
